FAERS Safety Report 21157623 (Version 1)
Quarter: 2022Q3

REPORT INFORMATION
  Report Type: Spontaneous
  Country: US (occurrence: US)
  Receive Date: 20220801
  Receipt Date: 20220801
  Transmission Date: 20221027
  Serious: Yes (Hospitalization)
  Sender: FDA-Public Use
  Company Number: US-MYLANLABS-2022M1082059

PATIENT
  Age: 50 Year
  Sex: Female

DRUGS (2)
  1. ROCURONIUM [Interacting]
     Active Substance: ROCURONIUM BROMIDE
     Indication: Muscle relaxant therapy
     Dosage: 100 MILLIGRAM
     Route: 065
  2. SEVOFLURANE [Interacting]
     Active Substance: SEVOFLURANE
     Indication: Anaesthesia
     Dosage: UNK

REACTIONS (3)
  - Drug interaction [Unknown]
  - Therapeutic product effect prolonged [Unknown]
  - Paralysis [Unknown]
